FAERS Safety Report 11323074 (Version 2)
Quarter: 2015Q3

REPORT INFORMATION
  Report Type: Spontaneous
  Country: CA (occurrence: CA)
  Receive Date: 20150730
  Receipt Date: 20150820
  Transmission Date: 20151125
  Serious: Yes (Other)
  Sender: FDA-Public Use
  Company Number: CA-ROCHE-1613928

PATIENT
  Age: 79 Year
  Sex: Female
  Weight: 80 kg

DRUGS (11)
  1. PAROXETINE [Concomitant]
     Active Substance: PAROXETINE\PAROXETINE HYDROCHLORIDE
     Dosage: AT BEDTIME
     Route: 048
  2. FENOFIBRATE. [Concomitant]
     Active Substance: FENOFIBRATE
     Dosage: AT BEDTIME
     Route: 048
  3. PLAQUENIL [Concomitant]
     Active Substance: HYDROXYCHLOROQUINE SULFATE
     Indication: RHEUMATOID ARTHRITIS
     Dosage: DAILY
     Route: 048
  4. SOLIFENACIN [Concomitant]
     Active Substance: SOLIFENACIN
     Dosage: AT BEDTIME
     Route: 048
  5. FERROUS FUMARATE [Concomitant]
     Active Substance: FERROUS FUMARATE
     Dosage: 300 (100) MG;FREQUENCY: DAILY
     Route: 048
  6. FELODIPINE. [Concomitant]
     Active Substance: FELODIPINE
     Dosage: DAILY
     Route: 048
  7. CANDESARTAN [Concomitant]
     Active Substance: CANDESARTAN
     Dosage: DAILY
     Route: 048
  8. RITUXAN [Suspect]
     Active Substance: RITUXIMAB
     Indication: RHEUMATOID ARTHRITIS
     Route: 042
     Dates: start: 20101210, end: 20150617
  9. ATENOLOL. [Concomitant]
     Active Substance: ATENOLOL
     Dosage: DAILY
     Route: 048
  10. METFORMIN [Concomitant]
     Active Substance: METFORMIN HYDROCHLORIDE
     Route: 048
  11. ESOMEPRAZOLE [Concomitant]
     Active Substance: ESOMEPRAZOLE
     Dosage: DAILY
     Route: 048

REACTIONS (7)
  - Diverticulum intestinal [Not Recovered/Not Resolved]
  - Hiatus hernia [Unknown]
  - Lymph node calcification [Unknown]
  - Computerised tomogram thorax abnormal [Unknown]
  - Scoliosis [Unknown]
  - Arthropathy [Unknown]
  - Renal impairment [Unknown]

NARRATIVE: CASE EVENT DATE: 20150719
